FAERS Safety Report 5519026-X (Version None)
Quarter: 2007Q4

REPORT INFORMATION
  Report Type: 
  Country: None (occurrence: None)
  Receive Date: 20071116
  Receipt Date: 20071107
  Transmission Date: 20080405
  Serious: Yes (Other)
  Sender: FDA-Public Use
  Company Number: PHBS2007JP18404

PATIENT
  Age: 54 Year
  Sex: Female

DRUGS (2)
  1. VOLTAREN [Suspect]
     Dosage: 25 MG/DAY
     Route: 054
     Dates: start: 20060501, end: 20060501
  2. DICLOFENAC SODIUM [Suspect]
     Dates: start: 20070513

REACTIONS (2)
  - LIVER DISORDER [None]
  - OCULOMUCOCUTANEOUS SYNDROME [None]
